FAERS Safety Report 5360064-8 (Version None)
Quarter: 2007Q2

REPORT INFORMATION
  Report Type: 
  Country: None (occurrence: None)
  Receive Date: 20070618
  Receipt Date: 20060706
  Transmission Date: 20071010
  Serious: No
  Sender: FDA-Public Use
  Company Number: US-ASTRAZENECA-2006UW06017

PATIENT
  Sex: Female
  Weight: 62.4 kg

DRUGS (2)
  1. FASLODEX [Suspect]
     Indication: BREAST CANCER
     Route: 030
     Dates: start: 20050829
  2. ZOMETA [Concomitant]

REACTIONS (1)
  - HEPATIC ENZYME INCREASED [None]
